FAERS Safety Report 8475388-5 (Version None)
Quarter: 2012Q2

REPORT INFORMATION
  Report Type: 
  Country: None (occurrence: None)
  Receive Date: 20120628
  Receipt Date: 20120613
  Transmission Date: 20120825
  Serious: Yes (Hospitalization, Other)
  Sender: FDA-Public Use
  Company Number: US-ROCHE-1078536

PATIENT
  Sex: Female
  Weight: 58.112 kg

DRUGS (7)
  1. KLONOPIN [Suspect]
     Indication: PRODUCT USED FOR UNKNOWN INDICATION
  2. DEPAKOTE [Suspect]
     Indication: PRODUCT USED FOR UNKNOWN INDICATION
     Route: 065
  3. TRAZODONE HCL [Suspect]
     Indication: PRODUCT USED FOR UNKNOWN INDICATION
  4. SEROQUEL [Concomitant]
     Route: 048
  5. VISTARIL [Suspect]
     Indication: PRODUCT USED FOR UNKNOWN INDICATION
     Route: 048
  6. STRATTERA [Concomitant]
     Indication: ATTENTION DEFICIT/HYPERACTIVITY DISORDER
     Route: 048
  7. NEURONTIN [Suspect]
     Indication: PRODUCT USED FOR UNKNOWN INDICATION

REACTIONS (17)
  - DYSPNOEA [None]
  - CARDIAC DISCOMFORT [None]
  - ANXIETY [None]
  - DRUG INEFFECTIVE [None]
  - EYE DISORDER [None]
  - SENSORY LOSS [None]
  - BLOOD PRESSURE INCREASED [None]
  - HYPERSOMNIA [None]
  - FEELING ABNORMAL [None]
  - MOVEMENT DISORDER [None]
  - ILL-DEFINED DISORDER [None]
  - PANIC ATTACK [None]
  - BLINDNESS [None]
  - WEIGHT INCREASED [None]
  - MIDDLE INSOMNIA [None]
  - ASTHENIA [None]
  - ACTIVITIES OF DAILY LIVING IMPAIRED [None]
